FAERS Safety Report 24328692 (Version 3)
Quarter: 2024Q4

REPORT INFORMATION
  Report Type: Report from Study
  Country: KR (occurrence: KR)
  Receive Date: 20240917
  Receipt Date: 20241016
  Transmission Date: 20250114
  Serious: Yes (Hospitalization)
  Sender: JOHNSON AND JOHNSON
  Company Number: KR-JNJFOC-20240901985

PATIENT
  Age: 78 Year
  Sex: Female

DRUGS (3)
  1. LAZERTINIB [Suspect]
     Active Substance: LAZERTINIB
     Indication: Non-small cell lung cancer
     Dosage: ROUTE OF ADMINISTRATION: NASOGASTRIC
     Route: 050
     Dates: start: 20240709, end: 20240905
  2. LAZERTINIB [Suspect]
     Active Substance: LAZERTINIB
     Dosage: ROUTE OF ADMINISTRATION: NASOGASTRIC
     Route: 050
     Dates: start: 20240909
  3. KCL [Concomitant]
     Active Substance: POTASSIUM CHLORIDE
     Indication: Hypokalaemia
     Route: 042
     Dates: start: 20240822

REACTIONS (1)
  - Colitis [Recovered/Resolved]

NARRATIVE: CASE EVENT DATE: 20240822
